FAERS Safety Report 9819335 (Version 1)
Quarter: 2014Q1

REPORT INFORMATION
  Report Type: Spontaneous
  Country: AR (occurrence: AR)
  Receive Date: 20140115
  Receipt Date: 20140115
  Transmission Date: 20141002
  Serious: Yes (Hospitalization)
  Sender: FDA-Public Use
  Company Number: AR-PFIZER INC-2014010978

PATIENT
  Age: 55 Year
  Sex: Female

DRUGS (4)
  1. RAPAMUNE [Suspect]
     Indication: RENAL TRANSPLANT
     Dosage: 1 MG, 1X/DAY
     Route: 048
     Dates: start: 20060101, end: 20131230
  2. RAPAMUNE [Suspect]
     Dosage: 1 MG, ALTERNATE DAY
     Dates: start: 20131230
  3. LOSARTAN [Concomitant]
  4. CARVEDILOL [Concomitant]

REACTIONS (4)
  - Pulmonary oedema [Not Recovered/Not Resolved]
  - Renal failure [Not Recovered/Not Resolved]
  - Proteinuria [Not Recovered/Not Resolved]
  - Lung infection [Not Recovered/Not Resolved]
